FAERS Safety Report 8904056 (Version 1)
Quarter: 2012Q4

REPORT INFORMATION
  Report Type: 
  Country: DE (occurrence: DE)
  Receive Date: 20121112
  Receipt Date: 20121112
  Transmission Date: 20130627
  Serious: Yes (Other)
  Sender: FDA-Public Use
  Company Number: DE-BRISTOL-MYERS SQUIBB COMPANY-17103680

PATIENT
  Age: 68 Year
  Sex: Female

DRUGS (1)
  1. MITOMYCIN-C [Suspect]
     Indication: BLADDER CANCER STAGE 0, WITH CANCER IN SITU
     Dosage: Injection
     Route: 043
     Dates: start: 201207, end: 201209

REACTIONS (2)
  - Cystitis [Recovered/Resolved]
  - Dermatitis allergic [Recovered/Resolved]
